FAERS Safety Report 6006916-7 (Version None)
Quarter: 2008Q4

REPORT INFORMATION
  Report Type: 
  Country: None (occurrence: None)
  Receive Date: 20081217
  Receipt Date: 20081215
  Transmission Date: 20090506
  Serious: Yes (Other)
  Sender: FDA-Public Use
  Company Number: JP-ASTRAZENECA-2008AP09637

PATIENT
  Age: 47 Year
  Sex: Female

DRUGS (2)
  1. XYLOCAINE [Suspect]
     Indication: LOCAL ANAESTHESIA
     Dosage: DOSE UNKNOWN
     Route: 049
  2. XYLOCAINE [Suspect]
     Dosage: DOSE UNKNOWN
     Route: 049

REACTIONS (1)
  - ANAPHYLACTIC SHOCK [None]
